FAERS Safety Report 9599365 (Version 2)
Quarter: 2013Q4

REPORT INFORMATION
  Report Type: Spontaneous
  Country: US (occurrence: US)
  Receive Date: 20131004
  Receipt Date: 20131004
  Transmission Date: 20140711
  Serious: No
  Sender: FDA-Public Use
  Company Number: US-AMGEN-USASP2013026183

PATIENT
  Age: 68 Year
  Sex: Female
  Weight: 70 kg

DRUGS (6)
  1. ENBREL [Suspect]
     Indication: PRODUCT USED FOR UNKNOWN INDICATION
     Dosage: 50 MG, QWK
     Route: 058
     Dates: end: 201212
  2. BACLOFEN [Concomitant]
     Dosage: 10 MG, UNK
  3. TRAMADOL HCL [Concomitant]
     Dosage: 50 MG, UNK
  4. REQUIP [Concomitant]
     Dosage: 0.25 MG, UNK
  5. NORTRIPTYLIN [Concomitant]
     Dosage: 10 MG, UNK
  6. HYZAAR [Concomitant]
     Dosage: 50-12.5

REACTIONS (1)
  - Influenza [Recovered/Resolved]
